FAERS Safety Report 5888478-8 (Version None)
Quarter: 2008Q3

REPORT INFORMATION
  Report Type: 
  Country: None (occurrence: None)
  Receive Date: 20080918
  Receipt Date: 20080905
  Transmission Date: 20090109
  Serious: Yes (Hospitalization)
  Sender: FDA-Public Use
  Company Number: US-ELI_LILLY_AND_COMPANY-US200809001260

PATIENT
  Age: 66 Year
  Sex: Female

DRUGS (7)
  1. CYMBALTA [Suspect]
     Dosage: 30 MG, UNK
  2. ZYRTEC [Concomitant]
  3. ATIVAN [Concomitant]
  4. PLAVIX [Concomitant]
  5. TYLENOL (CAPLET) [Concomitant]
  6. SINGULAIR [Concomitant]
  7. CARTIA XT [Concomitant]

REACTIONS (2)
  - APHASIA [None]
  - ISCHAEMIC STROKE [None]
